FAERS Safety Report 7334594-3 (Version None)
Quarter: 2011Q1

REPORT INFORMATION
  Report Type: 
  Country: None (occurrence: None)
  Receive Date: 20110307
  Receipt Date: 20101207
  Transmission Date: 20110831
  Serious: No
  Sender: FDA-Public Use
  Company Number: A0898384A

PATIENT
  Age: 46 Year
  Sex: Female

DRUGS (11)
  1. ROPINIROLE [Suspect]
     Indication: RESTLESS LEGS SYNDROME
     Dosage: 1TAB AT NIGHT
     Dates: start: 20090701
  2. OXYCODONE [Concomitant]
  3. MORPHINE SULFATE [Concomitant]
  4. MULTI-VITAMIN [Concomitant]
  5. VITAMIN D [Concomitant]
  6. ZOLOFT [Concomitant]
  7. CELEBREX [Concomitant]
  8. CALCIUM [Concomitant]
  9. REQUIP [Suspect]
     Indication: RESTLESS LEGS SYNDROME
     Dosage: 1MG AT NIGHT
     Route: 048
     Dates: start: 20060101, end: 20090701
  10. VITAMIN B COMPLEX CAP [Concomitant]
  11. DURAGESIC-50 [Concomitant]

REACTIONS (5)
  - SOMNOLENCE [None]
  - FEELING ABNORMAL [None]
  - MOUTH BREATHING [None]
  - DRY MOUTH [None]
  - NASAL CONGESTION [None]
